FAERS Safety Report 8500911 (Version 2)
Quarter: 2012Q4

REPORT INFORMATION
  Report Type: 
  Country: US (occurrence: US)
  Receive Date: 20120410
  Receipt Date: 20121009
  Transmission Date: 20130627
  Serious: No
  Sender: FDA-Public Use
  Company Number: US-PFIZER INC-2012085675

PATIENT
  Age: 55 Year
  Sex: Female
  Weight: 99.77 kg

DRUGS (10)
  1. LYRICA [Suspect]
     Indication: NEUROPATHY PERIPHERAL
     Dosage: 50 mg, 3x/day
     Dates: start: 201106
  2. LYRICA [Suspect]
     Dosage: 75 mg, 2x/day
  3. TRAMADOL [Suspect]
     Indication: ARTHRALGIA
     Dosage: 50 mg, 2x/day
  4. TRAMADOL [Suspect]
     Indication: BACK PAIN
  5. TRAMADOL [Suspect]
     Indication: NEUROPATHY PERIPHERAL
  6. LISINOPRIL [Concomitant]
     Indication: HYPERTENSION
     Dosage: 20 mg daily in the morning
  7. CLONIDINE HYDROCHLORIDE [Concomitant]
     Indication: HYPERTENSION
     Dosage: 0.2 mg, daily
  8. METFORMIN [Concomitant]
     Indication: DIABETES MELLITUS
     Dosage: 1000 mg, 2x/day
  9. LORATADINE [Concomitant]
     Indication: ASTHMA
     Dosage: 20 mg, daily
  10. LORATADINE [Concomitant]
     Indication: HYPERSENSITIVITY

REACTIONS (2)
  - Drug ineffective [Unknown]
  - Drug administration error [Unknown]
